FAERS Safety Report 5839883-7 (Version None)
Quarter: 2008Q3

REPORT INFORMATION
  Report Type: 
  Country: None (occurrence: None)
  Receive Date: 20080811
  Receipt Date: 20080709
  Transmission Date: 20090109
  Serious: No
  Sender: FDA-Public Use
  Company Number: US-BAYER-200827964NA

PATIENT
  Sex: Female

DRUGS (1)
  1. CIPRO [Suspect]
     Indication: INFECTION
     Route: 048

REACTIONS (4)
  - ARTHRALGIA [None]
  - DIARRHOEA [None]
  - JOINT SWELLING [None]
  - STOMACH DISCOMFORT [None]
